FAERS Safety Report 7774414-6 (Version None)
Quarter: 2011Q3

REPORT INFORMATION
  Report Type: 
  Country: None (occurrence: None)
  Receive Date: 20110923
  Receipt Date: 20110920
  Transmission Date: 20111222
  Serious: Yes (Other)
  Sender: FDA-Public Use
  Company Number: IT-ROXANE LABORATORIES, INC.-2011-RO-01313RO

PATIENT
  Age: 66 Year
  Sex: Female

DRUGS (6)
  1. BORTEZOMIB [Suspect]
     Indication: AMYLOIDOSIS
  2. ACYCLOVIR [Suspect]
     Indication: ANTIVIRAL PROPHYLAXIS
     Dosage: 500 MG
  3. DEXAMETHASONE [Suspect]
     Dosage: 20 MG
     Route: 048
  4. DEXAMETHASONE [Suspect]
     Indication: AMYLOIDOSIS
     Dosage: 40 MG
     Route: 048
  5. MELPHALAN HYDROCHLORIDE [Suspect]
     Indication: AMYLOIDOSIS
     Route: 048
  6. CYPROFLOXACINE [Suspect]
     Indication: INFECTION PROPHYLAXIS
     Dosage: 500 MG

REACTIONS (6)
  - PERIPHERAL SENSORY NEUROPATHY [None]
  - OEDEMA PERIPHERAL [None]
  - AMYLOIDOSIS [None]
  - FATIGUE [None]
  - ORTHOSTATIC HYPOTENSION [None]
  - CONSTIPATION [None]
